FAERS Safety Report 6753831-7 (Version None)
Quarter: 2010Q2

REPORT INFORMATION
  Report Type: 
  Country: None (occurrence: None)
  Receive Date: 20100520
  Receipt Date: 20090925
  Transmission Date: 20101027
  Serious: Yes (Other)
  Sender: FDA-Public Use
  Company Number: 2009275626

PATIENT
  Age: 55 Year
  Sex: Female

DRUGS (6)
  1. MEDROXYPROGESTERONE ACETATE [Suspect]
     Indication: HORMONE REPLACEMENT THERAPY
     Dosage: 5 MG HALF TAB, ORAL ; 10 MG 1 TAB, ORAL
     Route: 048
     Dates: start: 19931201, end: 20010111
  2. MEDROXYPROGESTERONE ACETATE [Suspect]
     Indication: HORMONE REPLACEMENT THERAPY
     Dosage: 5 MG HALF TAB, ORAL ; 10 MG 1 TAB, ORAL
     Route: 048
     Dates: start: 19931201, end: 20010111
  3. MEDROXYPROGESTERONE [Suspect]
     Indication: HORMONE REPLACEMENT THERAPY
     Dosage: 5 MG HALF TAB ; 10 MG 1 TAB
     Dates: start: 19931201, end: 20010111
  4. MEDROXYPROGESTERONE [Suspect]
     Indication: HORMONE REPLACEMENT THERAPY
     Dosage: 5 MG HALF TAB ; 10 MG 1 TAB
     Dates: start: 19931201, end: 20010111
  5. PREMARIN [Suspect]
     Indication: HORMONE REPLACEMENT THERAPY
     Dosage: 0.9 MG ; 0.625 MG
     Dates: start: 19931201, end: 20010111
  6. PREMARIN [Suspect]
     Indication: HORMONE REPLACEMENT THERAPY
     Dosage: 0.9 MG ; 0.625 MG
     Dates: start: 19931201, end: 20010111

REACTIONS (1)
  - BREAST CANCER FEMALE [None]
